FAERS Safety Report 25771490 (Version 1)
Quarter: 2025Q3

REPORT INFORMATION
  Report Type: Spontaneous
  Country: US (occurrence: US)
  Receive Date: 20250908
  Receipt Date: 20250908
  Transmission Date: 20251021
  Serious: No
  Sender: DOMPE FARMACEUTICI
  Company Number: US-FARMAPROD-202504-1366

PATIENT
  Sex: Female

DRUGS (10)
  1. OXERVATE [Suspect]
     Active Substance: CENEGERMIN-BKBJ
     Indication: Neurotrophic keratopathy
     Route: 047
     Dates: start: 20241230
  2. VEVYE [Concomitant]
     Active Substance: CYCLOSPORINE
  3. PROBIOTIC 100B [Concomitant]
  4. VITAMIN D-400 [Concomitant]
  5. REXULTI [Concomitant]
     Active Substance: BREXPIPRAZOLE
  6. PRILOSEC OTC [Concomitant]
     Active Substance: OMEPRAZOLE MAGNESIUM
  7. PREGABALIN [Concomitant]
     Active Substance: PREGABALIN
  8. LEVOTHYROXINE SODIUM [Concomitant]
     Active Substance: LEVOTHYROXINE SODIUM
  9. LEVOTHYROXINE SODIUM [Concomitant]
     Active Substance: LEVOTHYROXINE SODIUM
  10. SERTRALINE HYDROCHLORIDE [Concomitant]
     Active Substance: SERTRALINE HYDROCHLORIDE

REACTIONS (1)
  - Eye infection [Unknown]
